FAERS Safety Report 7095565-8 (Version None)
Quarter: 2010Q4

REPORT INFORMATION
  Report Type: 
  Country: None (occurrence: None)
  Receive Date: 20101102
  Receipt Date: 20101021
  Transmission Date: 20110411
  Serious: Yes (Other)
  Sender: FDA-Public Use
  Company Number: LEO-2010-00834

PATIENT
  Age: 39 Year
  Sex: Female
  Weight: 78.3 kg

DRUGS (2)
  1. INNOHEP [Suspect]
     Indication: DEEP VEIN THROMBOSIS
     Dosage: 19000 IU (19000 IU, 1 IN 1 D, SUBCUTANEOUS, 15000 IU, SUBCUTANEOUS
     Route: 058
     Dates: start: 20100719, end: 20100721
  2. INNOHEP [Suspect]
     Indication: DEEP VEIN THROMBOSIS
     Dosage: 19000 IU (19000 IU, 1 IN 1 D, SUBCUTANEOUS, 15000 IU, SUBCUTANEOUS
     Route: 058
     Dates: start: 20100722

REACTIONS (6)
  - DRUG DISPENSING ERROR [None]
  - DRUG EXPOSURE DURING PREGNANCY [None]
  - MEDICATION ERROR [None]
  - OVERDOSE [None]
  - PREMATURE LABOUR [None]
  - WRONG TECHNIQUE IN DRUG USAGE PROCESS [None]
